FAERS Safety Report 4445018-8 (Version None)
Quarter: 2004Q3

REPORT INFORMATION
  Report Type: 
  Country: None (occurrence: None)
  Receive Date: 20040908
  Receipt Date: 20040908
  Transmission Date: 20050211
  Serious: Yes (Life-Threatening, Hospitalization)
  Sender: FDA-Public Use
  Company Number: None

PATIENT
  Age: 72 Year
  Sex: Male
  Weight: 107.9561 kg

DRUGS (5)
  1. MALARONE [Suspect]
     Indication: MALARIA PROPHYLAXIS
     Dosage: 250/10MG  QD  ORAL
     Route: 048
     Dates: start: 20030802, end: 20040821
  2. COUMADIN [Suspect]
     Indication: ATRIAL FIBRILLATION
     Dosage: 5 MG   Q HS   ORAL
     Route: 048
  3. PREVACHOL [Concomitant]
  4. DIOVAN [Concomitant]
  5. ATENOLOL [Concomitant]

REACTIONS (4)
  - BACK INJURY [None]
  - COAGULATION TIME PROLONGED [None]
  - HAEMATOMA [None]
  - SYNCOPE [None]
